FAERS Safety Report 10376653 (Version 2)
Quarter: 2014Q3

REPORT INFORMATION
  Report Type: Spontaneous
  Country: US (occurrence: US)
  Receive Date: 20140811
  Receipt Date: 20140811
  Transmission Date: 20150326
  Serious: Yes (Hospitalization)
  Sender: FDA-Public Use
  Company Number: US-009507513-2009SP037673

PATIENT
  Sex: Female
  Weight: 85.73 kg

DRUGS (3)
  1. NUVARING [Suspect]
     Active Substance: ETHINYL ESTRADIOL\ETONOGESTREL
     Dates: start: 20030701, end: 20031203
  2. DIURETIC (UNSPECIFIED) [Concomitant]
     Active Substance: UNSPECIFIED INGREDIENT
     Indication: PRODUCT USED FOR UNKNOWN INDICATION
  3. NUVARING [Suspect]
     Active Substance: ETHINYL ESTRADIOL\ETONOGESTREL
     Indication: CONTRACEPTION
     Dosage: 1 DF, Q3W
     Route: 067
     Dates: start: 200411, end: 200811

REACTIONS (16)
  - Hyperlipidaemia [Unknown]
  - Leukocytosis [Unknown]
  - Thrombocytosis [Unknown]
  - Thrombophlebitis [Unknown]
  - Headache [Unknown]
  - Electrocardiogram abnormal [Unknown]
  - Tachycardia [Unknown]
  - Back pain [Unknown]
  - Ovarian mass [Unknown]
  - Cystitis [Unknown]
  - Vaginal infection [Unknown]
  - Road traffic accident [Unknown]
  - Dyspnoea [Unknown]
  - Pelvic venous thrombosis [Unknown]
  - Pharyngitis streptococcal [Unknown]
  - Weight increased [Unknown]

NARRATIVE: CASE EVENT DATE: 2005
